FAERS Safety Report 10775345 (Version 1)
Quarter: 2015Q1

REPORT INFORMATION
  Report Type: Spontaneous
  Country: US (occurrence: None)
  Receive Date: 20150205
  Receipt Date: 20150205
  Transmission Date: 20150721
  Serious: Yes (Other)
  Sender: FDA-Public Use
  Company Number: US-H14001-15-00161

PATIENT
  Age: 34 Year

DRUGS (2)
  1. STEROIDS (CORTICOSTEROIDS) [Concomitant]
     Active Substance: UNSPECIFIED INGREDIENT
  2. AMLODIPINE [Suspect]
     Active Substance: AMLODIPINE BESYLATE
     Indication: HYPERTENSION

REACTIONS (2)
  - Drug-induced liver injury [None]
  - Transaminases increased [None]
